FAERS Safety Report 7324805-2 (Version None)
Quarter: 2011Q1

REPORT INFORMATION
  Report Type: 
  Country: None (occurrence: None)
  Receive Date: 20110301
  Receipt Date: 20110217
  Transmission Date: 20110831
  Serious: Yes (Hospitalization)
  Sender: FDA-Public Use
  Company Number: JP-ELI_LILLY_AND_COMPANY-JP201102002186

PATIENT
  Age: 53 Year
  Sex: Female

DRUGS (4)
  1. VITAMIN B-12 [Concomitant]
  2. ALIMTA [Suspect]
     Dosage: UNK, UNK
     Route: 042
     Dates: start: 20110119
  3. CARBOPLATIN [Concomitant]
     Route: 042
     Dates: start: 20110119
  4. FOLIC ACID [Concomitant]

REACTIONS (1)
  - HEPATIC FUNCTION ABNORMAL [None]
